FAERS Safety Report 15980817 (Version 3)
Quarter: 2019Q1

REPORT INFORMATION
  Report Type: Spontaneous
  Country: AT (occurrence: AT)
  Receive Date: 20190219
  Receipt Date: 20190325
  Transmission Date: 20190418
  Serious: Yes (Other)
  Sender: FDA-Public Use
  Company Number: AT-PFIZER INC-2019055401

PATIENT
  Age: 47 Year
  Sex: Female

DRUGS (15)
  1. RISPERDAL [Suspect]
     Active Substance: RISPERIDONE
     Dosage: 2 MG, 1X/DAY
     Route: 065
     Dates: start: 20181002, end: 20181004
  2. SEROQUEL [Concomitant]
     Active Substance: QUETIAPINE FUMARATE
     Dosage: 50 MG, 1X/DAY
     Dates: start: 20181116
  3. RISPERDAL [Suspect]
     Active Substance: RISPERIDONE
     Indication: BORDERLINE PERSONALITY DISORDER
     Dosage: 4 MG, 1X/DAY
     Route: 065
     Dates: start: 20180830, end: 20180925
  4. CYMBALTA [Suspect]
     Active Substance: DULOXETINE HYDROCHLORIDE
     Dosage: 120 MG, 1X/DAY
     Route: 065
     Dates: start: 20180911, end: 20181203
  5. TEMESTA [LORAZEPAM] [Concomitant]
     Active Substance: LORAZEPAM
     Dosage: 5 MG, 1X/DAY
     Dates: start: 20180928
  6. RISPERDAL [Suspect]
     Active Substance: RISPERIDONE
     Indication: DEPRESSION
     Dosage: 3 MG, 1X/DAY
     Route: 065
     Dates: start: 20180925, end: 20181001
  7. CYMBALTA [Suspect]
     Active Substance: DULOXETINE HYDROCHLORIDE
     Dosage: 90 MG, 1X/DAY
     Route: 065
     Dates: start: 20181204
  8. TEMESTA [LORAZEPAM] [Concomitant]
     Active Substance: LORAZEPAM
     Dosage: 2 MG, 1X/DAY
     Route: 065
     Dates: start: 20180924, end: 20180928
  9. TRITTICO [Suspect]
     Active Substance: TRAZODONE HYDROCHLORIDE
     Dosage: 300 MG, 1X/DAY
     Route: 065
     Dates: start: 20170910
  10. NOZINAN [LEVOMEPROMAZINE] [Suspect]
     Active Substance: LEVOMEPROMAZINE
     Dosage: 50 MG, 1X/DAY
     Route: 065
     Dates: start: 20170910
  11. ABILIFY [Suspect]
     Active Substance: ARIPIPRAZOLE
     Dosage: 15 MG, 1X/DAY
     Route: 065
     Dates: start: 2017
  12. TRESLEEN [Suspect]
     Active Substance: SERTRALINE HYDROCHLORIDE
     Dosage: 100 MG, 1X/DAY
     Dates: start: 20180914
  13. ZELDOX [ZIPRASIDONE HYDROCHLORIDE] [Concomitant]
     Dosage: 1200 MG, 1X/DAY
     Dates: start: 20181009
  14. CYMBALTA [Suspect]
     Active Substance: DULOXETINE HYDROCHLORIDE
     Dosage: 90 MG, 1X/DAY
     Route: 065
     Dates: start: 201808, end: 20180910
  15. TOPIRAMAT [Concomitant]
     Active Substance: TOPIRAMATE
     Dosage: 50 MG, 1X/DAY
     Route: 065
     Dates: start: 20170908

REACTIONS (3)
  - Blood prolactin increased [Unknown]
  - Galactorrhoea [Recovered/Resolved]
  - Urinary retention [Recovering/Resolving]

NARRATIVE: CASE EVENT DATE: 20180925
